FAERS Safety Report 4740639-7 (Version None)
Quarter: 2005Q3

REPORT INFORMATION
  Report Type: 
  Country: None (occurrence: None)
  Receive Date: 20050801
  Receipt Date: 20050407
  Transmission Date: 20060218
  Serious: No
  Sender: FDA-Public Use
  Company Number: 800335

PATIENT
  Sex: Male

DRUGS (1)
  1. EXTRANEAL [Suspect]
     Dosage: EVERY DAY; IP
     Route: 033
     Dates: start: 20041122, end: 20041220

REACTIONS (1)
  - FLUID RETENTION [None]
